FAERS Safety Report 18491229 (Version 1)
Quarter: 2020Q4

REPORT INFORMATION
  Report Type: Spontaneous
  Country: SE (occurrence: SE)
  Receive Date: 20201111
  Receipt Date: 20201111
  Transmission Date: 20210114
  Serious: Yes (Other)
  Sender: FDA-Public Use
  Company Number: SE-TEVA-2020-SE-1846002

PATIENT
  Age: 54 Year
  Sex: Female

DRUGS (12)
  1. WARAN 2,5 MG TABLETT [Interacting]
     Active Substance: WARFARIN SODIUM
     Dosage: TREATMENT SCHEDULE WITH 15 TABLETS A WEEK.
     Dates: start: 20200622
  2. BISOPROLOL ACCORD 2,5 MG FILMDRAGERAD TABLETT [Concomitant]
     Dosage: 2 ST AT 08:00?1 ST AT 20.00
     Dates: start: 20200616
  3. TRAMADOL RETARD ACTAVIS 100 MG DEPOTTABLETT [Concomitant]
     Dates: start: 20200603
  4. SPIRONOLACTONE ACCORD 25 MG FILMDRAGERAD TABLETT [Concomitant]
     Dosage: 12.5MILLIGRAM
     Dates: start: 20200814
  5. REPLENS  VAGINALGEL [Concomitant]
     Dates: start: 20200727
  6. ROACTEMRA 162 MG INJEKTIONSVATSKA, LOSNING I FOFYLLD INJEKTIONSPENNA [Interacting]
     Active Substance: TOCILIZUMAB
     Indication: RHEUMATOID ARTHRITIS
     Dates: start: 20200920
  7. ENALAPRIL KRKA 10 MG TABLETT [Concomitant]
     Dosage: 20MILLIGRAM
     Dates: start: 20200731
  8. KALCIPOS-D [Concomitant]
     Active Substance: CALCIUM CARBONATE\CHOLECALCIFEROL
     Dosage: 1DOSAGEFORM
     Dates: start: 20170407
  9. IMOVANE [Concomitant]
     Active Substance: ZOPICLONE
     Dates: start: 20200615
  10. BEHEPAN 1 MG FILMDRAGERAD TABLETT [Concomitant]
     Dosage: 1MILLIGRAM
     Dates: start: 20120924
  11. ESOMEPRAZOL ACTAVIS 20 MG ENTEROTABLETT [Suspect]
     Active Substance: ESOMEPRAZOLE MAGNESIUM
     Dosage: 20MILLIGRAM
     Dates: start: 20190516
  12. FOLSYRA EVOLAN 5 MG TABLETT [Concomitant]
     Dosage: 1MILLIGRAM
     Dates: start: 20180321

REACTIONS (2)
  - Drug interaction [Recovered/Resolved]
  - International normalised ratio decreased [Recovered/Resolved]

NARRATIVE: CASE EVENT DATE: 20201009
